FAERS Safety Report 23623675 (Version 8)
Quarter: 2024Q3

REPORT INFORMATION
  Report Type: Report from Study
  Country: US (occurrence: US)
  Receive Date: 20240312
  Receipt Date: 20240919
  Transmission Date: 20241016
  Serious: Yes (Hospitalization, Other)
  Sender: BAYER
  Company Number: US-BAYER-2024A036448

PATIENT
  Age: 62 Year
  Sex: Female
  Weight: 92.517 kg

DRUGS (27)
  1. ADEMPAS [Suspect]
     Active Substance: RIOCIGUAT
     Indication: Pulmonary arterial hypertension
     Dosage: UNK
     Route: 048
     Dates: start: 20220621
  2. ADEMPAS [Suspect]
     Active Substance: RIOCIGUAT
     Indication: Product used for unknown indication
     Dosage: 2.5 MG, TID
     Route: 048
  3. ADEMPAS [Suspect]
     Active Substance: RIOCIGUAT
     Indication: Pulmonary arterial hypertension
     Dosage: 2.5 MG, TID
     Route: 048
  4. ADEMPAS [Suspect]
     Active Substance: RIOCIGUAT
     Indication: Pulmonary arterial hypertension
     Dosage: 2.5 MG, TID
     Route: 048
  5. ADEMPAS [Suspect]
     Active Substance: RIOCIGUAT
     Indication: Pulmonary arterial hypertension
     Dosage: 2.5 MG, BID
     Route: 048
  6. ADEMPAS [Suspect]
     Active Substance: RIOCIGUAT
     Indication: Pulmonary arterial hypertension
     Dosage: 2.5 MG, TID
     Route: 048
  7. UPTRAVI [Suspect]
     Active Substance: SELEXIPAG
     Indication: Pulmonary hypertension
  8. SYNJARDY XR [Concomitant]
     Active Substance: EMPAGLIFLOZIN\METFORMIN HYDROCHLORIDE
  9. NASACORT [Concomitant]
     Active Substance: TRIAMCINOLONE ACETONIDE
  10. ALLEGRA ALLERGY [Concomitant]
     Active Substance: FEXOFENADINE HYDROCHLORIDE
  11. FLUZONE QUADRIVALENT NOS [Concomitant]
     Active Substance: INFLUENZA A VIRUS A/CALIFORNIA/7/2009 X-179A (H1N1) ANTIGEN (FORMALDEHYDE INACTIVATED)\INFLUENZA A V
  12. PFIZER-BIONTECH COVID-19 VACCINE [Concomitant]
     Active Substance: TOZINAMERAN
  13. ALBUTEROL SULFATE [Concomitant]
     Active Substance: ALBUTEROL SULFATE
  14. MINERALS\VITAMINS [Concomitant]
     Active Substance: MINERALS\VITAMINS
  15. TYLENOL ARTHRITIS PAIN [Concomitant]
     Active Substance: ACETAMINOPHEN
  16. ASPIRIN [Concomitant]
     Active Substance: ASPIRIN
  17. OPSUMIT [Concomitant]
     Active Substance: MACITENTAN
  18. METOPROLOL SUCCINATE [Concomitant]
     Active Substance: METOPROLOL SUCCINATE
  19. METHAZOLAMIDE [Concomitant]
     Active Substance: METHAZOLAMIDE
  20. SIMVASTATIN [Concomitant]
     Active Substance: SIMVASTATIN
  21. FUROSEMIDE [Concomitant]
     Active Substance: FUROSEMIDE
  22. METAMUCIL [Concomitant]
     Active Substance: PLANTAGO SEED
  23. GLUCOSAMINE + MSM [Concomitant]
  24. BETAMETHASONE VALERATE [Concomitant]
     Active Substance: BETAMETHASONE VALERATE
  25. ELIQUIS [Concomitant]
     Active Substance: APIXABAN
  26. LASIX [Concomitant]
     Active Substance: FUROSEMIDE
  27. MUCINEX [Concomitant]
     Active Substance: GUAIFENESIN

REACTIONS (22)
  - Pulmonary thrombosis [None]
  - Blood potassium abnormal [None]
  - Hypotension [None]
  - Overdose [None]
  - Pericardial effusion [None]
  - Pneumonia [None]
  - Lung disorder [None]
  - Blood potassium decreased [None]
  - Sexually transmitted disease [None]
  - Abdominal pain upper [None]
  - Emergency care [None]
  - Hypoxia [None]
  - Hypotension [Recovering/Resolving]
  - Gait disturbance [None]
  - Cardiac disorder [None]
  - Nasal congestion [None]
  - Sinusitis [None]
  - Dizziness [None]
  - Blood pressure decreased [Recovered/Resolved]
  - Inappropriate schedule of product administration [None]
  - Ocular discomfort [Recovered/Resolved]
  - Hypotension [None]

NARRATIVE: CASE EVENT DATE: 20240309
